FAERS Safety Report 18016358 (Version 2)
Quarter: 2020Q3

REPORT INFORMATION
  Report Type: Spontaneous
  Country: IT (occurrence: IT)
  Receive Date: 20200713
  Receipt Date: 20200716
  Transmission Date: 20201103
  Serious: Yes (Other)
  Sender: FDA-Public Use
  Company Number: IT-LUNDBECK-DKLU3018461

PATIENT
  Age: 18 Month
  Sex: Female

DRUGS (16)
  1. VIGABATRIN (FOR ORAL SOLUTION) [Suspect]
     Active Substance: VIGABATRIN
     Indication: EPILEPTIC ENCEPHALOPATHY
     Dosage: RECEIVED DURING THE FIRST MONTHS OF LIFE
     Route: 065
  2. MORPHINE SULFATE. [Suspect]
     Active Substance: MORPHINE SULFATE
     Indication: PAIN
     Dosage: 0.3?0.4 MG/KG/DOSE
     Route: 048
  3. LORAZEPAM. [Suspect]
     Active Substance: LORAZEPAM
     Indication: DYSTONIA
     Route: 065
  4. BOTULINUM TOXIN [Concomitant]
     Active Substance: BOTULINUM TOXIN NOS
     Indication: DYSTONIA
     Route: 065
  5. PHENOBARBITAL. [Suspect]
     Active Substance: PHENOBARBITAL
     Indication: EPILEPTIC ENCEPHALOPATHY
     Route: 065
  6. CORTICOTROPIN [Suspect]
     Active Substance: CORTICOTROPIN
     Indication: EPILEPTIC ENCEPHALOPATHY
     Dosage: RECEIVED DURING THE FIRST MONTHS OF LIFE
     Route: 065
  7. LEVETIRACETAM. [Suspect]
     Active Substance: LEVETIRACETAM
     Indication: EPILEPTIC ENCEPHALOPATHY
     Route: 065
  8. PARACETAMOL [Suspect]
     Active Substance: ACETAMINOPHEN
     Indication: PAIN
     Route: 048
  9. FENTANYL. [Suspect]
     Active Substance: FENTANYL
     Indication: PAIN
     Route: 045
  10. BACLOFEN. [Suspect]
     Active Substance: BACLOFEN
     Indication: DYSTONIA
     Route: 065
  11. DEXMEDETOMIDINE. [Suspect]
     Active Substance: DEXMEDETOMIDINE
     Indication: DYSTONIA
     Dosage: VIA A MUCOSAL ATOMIZATION DEVICE
     Route: 045
  12. DEXMEDETOMIDINE. [Suspect]
     Active Substance: DEXMEDETOMIDINE
     Dosage: VIA A MUCOSAL ATOMIZATION DEVICE
     Route: 045
  13. TETRABENAZINE. [Suspect]
     Active Substance: TETRABENAZINE
     Indication: DYSTONIA
     Route: 065
  14. GABAPENTIN. [Suspect]
     Active Substance: GABAPENTIN
     Indication: DYSTONIA
     Route: 065
  15. VALPROATE SODIUM. [Suspect]
     Active Substance: VALPROATE SODIUM
     Indication: EPILEPTIC ENCEPHALOPATHY
     Route: 065
  16. IBUPROFEN. [Suspect]
     Active Substance: IBUPROFEN
     Indication: PAIN
     Route: 048

REACTIONS (4)
  - Epileptic encephalopathy [Unknown]
  - Dystonia [Unknown]
  - Off label use [Unknown]
  - Drug ineffective [Unknown]
